FAERS Safety Report 13792574 (Version 1)
Quarter: 2017Q3

REPORT INFORMATION
  Report Type: Spontaneous
  Country: GB (occurrence: GB)
  Receive Date: 20170726
  Receipt Date: 20170726
  Transmission Date: 20171127
  Serious: Yes (Other)
  Sender: FDA-Public Use
  Company Number: GB-PFIZER INC-1541791

PATIENT
  Sex: Female

DRUGS (5)
  1. TEGRETOL [Suspect]
     Active Substance: CARBAMAZEPINE
     Dosage: 200 MG,  FREQ: 2 DAY; INTERVAL: 1
  2. PHENYTOIN. [Suspect]
     Active Substance: PHENYTOIN
     Indication: SEIZURE
     Dosage: UNK
  3. TEGRETOL [Suspect]
     Active Substance: CARBAMAZEPINE
     Indication: PRODUCT USED FOR UNKNOWN INDICATION
     Dosage: 200 MG, FREQ: 2 DAY; INTERVAL: 1
  4. TEGRETOL [Suspect]
     Active Substance: CARBAMAZEPINE
     Indication: SEIZURE
     Dosage: 300 MG,  FREQ: 2 DAY; INTERVAL: 1
  5. HMG COA REDUCTASE INHIBITORS [Concomitant]
     Active Substance: UNSPECIFIED INGREDIENT
     Indication: PRODUCT USED FOR UNKNOWN INDICATION

REACTIONS (6)
  - Malaise [Unknown]
  - Myalgia [Unknown]
  - Muscular weakness [Unknown]
  - Seizure [Unknown]
  - Anxiety [Unknown]
  - Lymphadenopathy [Unknown]

NARRATIVE: CASE EVENT DATE: 201109
